FAERS Safety Report 5705270-5 (Version None)
Quarter: 2008Q2

REPORT INFORMATION
  Report Type: 
  Country: None (occurrence: None)
  Receive Date: 20080410
  Receipt Date: 20080403
  Transmission Date: 20081010
  Serious: Yes (Death)
  Sender: FDA-Public Use
  Company Number: SPV1-2008-00693

PATIENT
  Age: 22 Year
  Sex: Male
  Weight: 36 kg

DRUGS (1)
  1. IDURSULFASE(IDURSULFASE) CONCENTRATE FOR SOLUTION FOR INFUSION [Suspect]
     Dosage: 18 MG, 1X/WEEK, IV DRIP
     Route: 041
     Dates: start: 20071127, end: 20080321

REACTIONS (1)
  - RESPIRATORY FAILURE [None]
